FAERS Safety Report 12294381 (Version 1)
Quarter: 2016Q2

REPORT INFORMATION
  Report Type: Spontaneous
  Country: US (occurrence: None)
  Receive Date: 20160421
  Receipt Date: 20160421
  Transmission Date: 20160815
  Serious: No
  Sender: FDA-Public Use
  Company Number: None

PATIENT
  Sex: Female

DRUGS (1)
  1. KENALOG [Suspect]
     Active Substance: TRIAMCINOLONE ACETONIDE
     Indication: MULTIPLE ALLERGIES
     Dosage: NEVER AGAIN! INJECTION HIP
     Dates: start: 20160413, end: 20160413

REACTIONS (2)
  - Synovial cyst [None]
  - Drug ineffective [None]

NARRATIVE: CASE EVENT DATE: 20160414
